FAERS Safety Report 7751035-2 (Version None)
Quarter: 2011Q3

REPORT INFORMATION
  Report Type: 
  Country: None (occurrence: None)
  Receive Date: 20110912
  Receipt Date: 20110825
  Transmission Date: 20111222
  Serious: Yes (Other)
  Sender: FDA-Public Use
  Company Number: 2011SP002963

PATIENT
  Age: 71 Year
  Sex: Male

DRUGS (1)
  1. BROVANA [Suspect]
     Indication: CHRONIC OBSTRUCTIVE PULMONARY DISEASE
     Dosage: 15 UG/2ML;BID;INHALATION
     Route: 055
     Dates: start: 20090101

REACTIONS (4)
  - METASTASES TO LUNG [None]
  - PANCREATIC CARCINOMA METASTATIC [None]
  - MEDICATION ERROR [None]
  - INCORRECT STORAGE OF DRUG [None]
